FAERS Safety Report 10244468 (Version 1)
Quarter: 2014Q1

REPORT INFORMATION
  Report Type: Spontaneous
  Country: US (occurrence: None)
  Receive Date: 20140306
  Receipt Date: 20140306
  Transmission Date: 20141002
  Serious: Yes (Death)
  Sender: FDA-Public Use
  Company Number: 163-21880-13014371

PATIENT
  Age: 75 Year
  Sex: Female

DRUGS (14)
  1. REVLIMID (LENALIDOMIDE) (25 MILLIGRAM, CAPSULES) [Suspect]
     Indication: PLASMA CELL MYELOMA
     Route: 048
     Dates: start: 20080818
  2. HYDROCODONE/ACETAMINOPHEN (REMEDEINE) (UNKNOWN) [Concomitant]
  3. LORAZEPAM (TABLETS) [Concomitant]
  4. DEXAMETHASONE (4 MILLIGRAM, TABLETS) [Concomitant]
  5. LOVENOX (HEPARIN-FRACTION, SODIUM SALT) (INJECTION) [Concomitant]
  6. DICYCLOMINE (DICYCLOVERINE HYDROCHLORIDE) (TABLETS) [Concomitant]
  7. FLEXERIL (CYCLOBENZAPRINE HYDROCHLORIDE) (UNKNOWN) [Concomitant]
  8. HYDROCODONE/APAP (VICODIN) (TABLETS) [Concomitant]
  9. PROCHLORPER (PROCHLORPERAZINE) (TABLETS) [Concomitant]
  10. COUMADIN (WARFARIN SODIUM) (TABLETS) [Concomitant]
  11. VALTREX (VALACICLOVIR HYDROCHLORIDE) (TABLETS) [Concomitant]
  12. LASIX (FUROSEMIDE) (TABLETS) [Concomitant]
  13. DIPHENOXYLATE/ATROPINE (LOMOTIL) (TABLETS) [Concomitant]
  14. OXYCODONE (UNKNOWN) [Concomitant]

REACTIONS (2)
  - Cardiac failure congestive [None]
  - Pneumonia [None]
